FAERS Safety Report 6804685 (Version 2)
Quarter: 2020Q3

REPORT INFORMATION
  Report Type: Report from Study
  Country: US (occurrence: US)
  Receive Date: 20081106
  Receipt Date: 20081112
  Transmission Date: 20201105
  Serious: Yes (Hospitalization)
  Sender: FDA-Public Use
  Company Number: US-ROCHE-594590

PATIENT
  Age: 74 Year
  Sex: Female

DRUGS (1)
  1. IBANDRONIC ACID. [Suspect]
     Active Substance: IBANDRONIC ACID
     Indication: PRODUCT USED FOR UNKNOWN INDICATION
     Route: 065
     Dates: start: 2005, end: 20080601

REACTIONS (3)
  - Cardiac disorder [Recovered/Resolved]
  - Pain in extremity [Recovered/Resolved]
  - Back pain [Recovered/Resolved]
